FAERS Safety Report 9206498 (Version 3)
Quarter: 2013Q2

REPORT INFORMATION
  Report Type: Spontaneous
  Country: US (occurrence: US)
  Receive Date: 20130403
  Receipt Date: 20130513
  Transmission Date: 20140414
  Serious: Yes (Disabling)
  Sender: FDA-Public Use
  Company Number: US-PFIZER INC-2013104549

PATIENT
  Age: 50 Year
  Sex: Female
  Weight: 136 kg

DRUGS (7)
  1. CELEBREX [Suspect]
     Indication: LIMB DISCOMFORT
     Dosage: 200 MG, 1X/DAY
     Route: 048
  2. CELEBREX [Suspect]
     Indication: ARTHRITIS
     Dosage: 200 MG, 2X/DAY
     Route: 048
  3. XANAX [Concomitant]
     Indication: ANXIETY
     Dosage: 1 MG, 2X/DAY
     Route: 048
  4. BACLOFEN [Concomitant]
     Indication: MUSCLE SPASMS
     Dosage: 10 MG
  5. RESTORIL [Concomitant]
     Indication: SLEEP DISORDER
     Dosage: 30 MG, ONCE A DAY
  6. PERCOCET [Concomitant]
     Indication: PAIN
     Dosage: 10/650MG, 3X/DAY
  7. LORTAB [Concomitant]
     Indication: PAIN
     Dosage: 10/500 MG

REACTIONS (3)
  - Gait disturbance [Not Recovered/Not Resolved]
  - Pain [Unknown]
  - Weight increased [Unknown]
